FAERS Safety Report 5711076-3 (Version None)
Quarter: 2008Q2

REPORT INFORMATION
  Report Type: 
  Country: None (occurrence: None)
  Receive Date: 20080421
  Receipt Date: 20080407
  Transmission Date: 20081010
  Serious: Yes (Hospitalization)
  Sender: FDA-Public Use
  Company Number: SE-AMGEN-UK269844

PATIENT
  Age: 15 Year
  Sex: Female

DRUGS (5)
  1. KINERET [Suspect]
     Indication: POLYARTHRITIS
     Route: 058
     Dates: start: 20071029, end: 20080208
  2. PREDNISOLONE [Concomitant]
     Route: 065
  3. BRUFEN [Concomitant]
     Route: 065
  4. METHOTREXATE [Concomitant]
     Route: 065
  5. ALVEDON [Concomitant]
     Route: 065

REACTIONS (4)
  - ABDOMINAL PAIN [None]
  - PYREXIA [None]
  - RENAL ABSCESS [None]
  - VOMITING [None]
